FAERS Safety Report 14434280 (Version 10)
Quarter: 2021Q1

REPORT INFORMATION
  Report Type: Spontaneous
  Country: NL (occurrence: NL)
  Receive Date: 20180124
  Receipt Date: 20210120
  Transmission Date: 20210419
  Serious: Yes (Hospitalization)
  Sender: FDA-Public Use
  Company Number: NL-TEVA-2018-NL-848286

PATIENT
  Age: 73 Year
  Sex: Female

DRUGS (8)
  1. METOPROLOL TABLET 100MG / BRAND NAME NOT SPECIFIED [Suspect]
     Active Substance: METOPROLOL
     Indication: ARRHYTHMIA
     Dosage: 100 MILLIGRAM DAILY; THERAPY START DATE AND THERAPY END DATE : ASKED BUT UNKNOWN
     Route: 065
  2. OMEPRAZOL CAPSULE MSR 40MG / BRAND NAME NOT SPECIFIED [Concomitant]
     Dosage: THERAPY START DATE AND THERAPY END DATE : ASKED BUT UNKNOWN
     Route: 065
  3. HYDROCHLOORTHIAZIDE TABLET, 12,5 MG (MILLIGRAM) [Suspect]
     Active Substance: HYDROCHLOROTHIAZIDE
     Indication: HYPERTENSION
     Dosage: 12.5 MILLIGRAM DAILY; THERAPY START DATE : ASKED BUT UNKNOWN
     Route: 065
     Dates: end: 201710
  4. SPIRONOLACTON TABLET 12,5MG / BRAND NAME NOT SPECIFIED [Suspect]
     Active Substance: SPIRONOLACTONE
     Indication: HYPERTENSION
     Dosage: 12.5 MILLIGRAM DAILY; 1 DAILY 1 TABLET?THERAPY START DATE : ASKED BUT UNKNOWN
     Route: 065
     Dates: end: 201710
  5. HYDRALAZINE [Suspect]
     Active Substance: HYDRALAZINE HYDROCHLORIDE
     Indication: HYPERTENSION
     Dosage: 30 MILLIGRAM DAILY; 3D1T?THERAPY START DATE  : ASKED BUT UNKNOWN
     Route: 065
     Dates: end: 201710
  6. HYDROXYCARBAMIDE CAPSULE 500MG / HYDREA CAPSULE 500MG ? NON?CURRENT DR [Concomitant]
     Dosage: THERAPY START DATE AND THERAPY END DATE : ASKED BUT UNKNOWN
  7. VALSARTAN/HYDROCHLOORTHIAZIDE TAB OMH 160/25MG / BRAND NAME NOT SPECIF [Suspect]
     Active Substance: HYDROCHLOROTHIAZIDE\VALSARTAN
     Indication: HYPERTENSION
     Dosage: 1 DOSAGE FORMS DAILY;  1 DAILY 1 TABLET?THERAPY START DATE : ASKED BUT UNKNOWN
     Route: 065
     Dates: end: 201710
  8. RIVAROXABAN TABLET 20MG / XARELTO TABLET FILMOMHULD 20MG [Concomitant]
     Dosage: THERAPY START DATE AND THERAPY END DATE : ASKED BUT UNKNOWN

REACTIONS (2)
  - Toe amputation [Recovered/Resolved with Sequelae]
  - Chillblains [Recovered/Resolved with Sequelae]

NARRATIVE: CASE EVENT DATE: 20160811
